FAERS Safety Report 19267417 (Version 1)
Quarter: 2021Q2

REPORT INFORMATION
  Report Type: Spontaneous
  Country: US (occurrence: US)
  Receive Date: 20210518
  Receipt Date: 20210518
  Transmission Date: 20210717
  Serious: No
  Sender: FDA-Public Use
  Company Number: US-CELLTRION INC.-2021US002671

PATIENT

DRUGS (4)
  1. TRUXIMA [Suspect]
     Active Substance: RITUXIMAB-ABBS
     Indication: IMMUNE THROMBOCYTOPENIA
     Dosage: 800 MG Q8DAYS
     Dates: start: 20210105, end: 20210105
  2. TRUXIMA [Suspect]
     Active Substance: RITUXIMAB-ABBS
     Dosage: 800 MG Q8DAYS
     Dates: start: 20210115, end: 20210115
  3. TRUXIMA [Suspect]
     Active Substance: RITUXIMAB-ABBS
     Dosage: 800 MG Q8DAYS
     Dates: start: 20210122, end: 20210122
  4. TRUXIMA [Suspect]
     Active Substance: RITUXIMAB-ABBS
     Dosage: 800 MG Q8DAYS
     Dates: start: 20210129, end: 20210129

REACTIONS (1)
  - Off label use [Unknown]
